FAERS Safety Report 16735152 (Version 1)
Quarter: 2019Q3

REPORT INFORMATION
  Report Type: Spontaneous
  Country: US (occurrence: US)
  Receive Date: 20190823
  Receipt Date: 20190823
  Transmission Date: 20191005
  Serious: No
  Sender: FDA-Public Use
  Company Number: US-STALLERGENES SAS-2073580

PATIENT
  Age: 14 Year
  Sex: Female

DRUGS (9)
  1. SERTRALINE [Concomitant]
     Active Substance: SERTRALINE HYDROCHLORIDE
  2. ALLEGRA [Concomitant]
     Active Substance: FEXOFENADINE HYDROCHLORIDE
  3. RIZATRIPTAN BENZOATE. [Concomitant]
     Active Substance: RIZATRIPTAN BENZOATE
  4. ORALAIR [Suspect]
     Active Substance: ANTHOXANTHUM ODORATUM POLLEN\DACTYLIS GLOMERATA POLLEN\LOLIUM PERENNE POLLEN\PHLEUM PRATENSE POLLEN\POA PRATENSIS POLLEN
     Indication: SEASONAL ALLERGY
     Route: 060
     Dates: start: 20180725, end: 20190415
  5. PROVENTIL [Concomitant]
     Active Substance: ALBUTEROL
  6. CYCLOBENZAPRINE. [Concomitant]
     Active Substance: CYCLOBENZAPRINE
  7. ZOLPIDEM TARTRATE EXTENDED-RELEASE [Concomitant]
     Active Substance: ZOLPIDEM TARTRATE
  8. FLONASE [Concomitant]
     Active Substance: FLUTICASONE PROPIONATE
  9. NORTRIPTYLINE HYDROCHLORIDE. [Concomitant]
     Active Substance: NORTRIPTYLINE HYDROCHLORIDE

REACTIONS (10)
  - Oedema peripheral [Recovered/Resolved]
  - Pharyngeal oedema [Recovered/Resolved]
  - Urticaria [Unknown]
  - Off label use [Unknown]
  - Gingival oedema [Unknown]
  - Oropharyngeal pain [Recovered/Resolved]
  - Palmar erythema [Recovered/Resolved]
  - Pruritus [Recovered/Resolved]
  - Gingival pruritus [Unknown]
  - Gingival erythema [Unknown]

NARRATIVE: CASE EVENT DATE: 20190408
